FAERS Safety Report 6355028-1 (Version None)
Quarter: 2009Q3

REPORT INFORMATION
  Report Type: 
  Country: None (occurrence: None)
  Receive Date: 20090914
  Receipt Date: 20090907
  Transmission Date: 20100115
  Serious: Yes (Other)
  Sender: FDA-Public Use
  Company Number: B0592054A

PATIENT
  Sex: Female

DRUGS (1)
  1. AUGMENTIN [Suspect]
     Indication: GENITOURINARY TRACT INFECTION
     Dosage: 625MG UNKNOWN
     Route: 048
     Dates: start: 20090823, end: 20090830

REACTIONS (13)
  - CIRCULATORY COLLAPSE [None]
  - DECREASED APPETITE [None]
  - DIARRHOEA [None]
  - DIZZINESS [None]
  - DYSMENORRHOEA [None]
  - DYSPNOEA [None]
  - FATIGUE [None]
  - INFECTION [None]
  - LETHARGY [None]
  - MALAISE [None]
  - RASH [None]
  - TREMOR [None]
  - VISUAL IMPAIRMENT [None]
